FAERS Safety Report 16030009 (Version 5)
Quarter: 2020Q1

REPORT INFORMATION
  Report Type: Spontaneous
  Country: US (occurrence: US)
  Receive Date: 20190304
  Receipt Date: 20200122
  Transmission Date: 20200409
  Serious: Yes (Hospitalization, Other)
  Sender: FDA-Public Use
  Company Number: US-GLAXOSMITHKLINE-US2019GSK037443

PATIENT
  Sex: Male

DRUGS (2)
  1. PREVACID [Suspect]
     Active Substance: LANSOPRAZOLE
     Indication: GASTROOESOPHAGEAL REFLUX DISEASE
     Dosage: 15 MG, QD
     Route: 065
  2. PREVACID [Suspect]
     Active Substance: LANSOPRAZOLE
     Indication: GASTROOESOPHAGEAL REFLUX DISEASE
     Dosage: 30 MG, QD
     Route: 065

REACTIONS (28)
  - End stage renal disease [Unknown]
  - Nocturia [Unknown]
  - Renal failure [Unknown]
  - Hydronephrosis [Unknown]
  - Urine flow decreased [Unknown]
  - Nephrolithiasis [Unknown]
  - Urinary retention [Unknown]
  - Glomerulonephritis [Unknown]
  - Pollakiuria [Unknown]
  - Micturition urgency [Unknown]
  - Calculus urinary [Unknown]
  - Renal disorder [Unknown]
  - Nephrotic syndrome [Unknown]
  - Renal mass [Unknown]
  - Chronic kidney disease [Unknown]
  - Nephropathy [Unknown]
  - Renal colic [Unknown]
  - Focal segmental glomerulosclerosis [Unknown]
  - Cystoscopy [Unknown]
  - Urethrotomy [Unknown]
  - Nephrogenic anaemia [Unknown]
  - Acute kidney injury [Unknown]
  - Glomerulosclerosis [Unknown]
  - Urethral obstruction [Unknown]
  - Dysuria [Unknown]
  - Renal injury [Unknown]
  - Urethral stenosis [Unknown]
  - Proteinuria [Unknown]
